FAERS Safety Report 16610308 (Version 2)
Quarter: 2019Q3

REPORT INFORMATION
  Report Type: Spontaneous
  Country: JP (occurrence: JP)
  Receive Date: 20190722
  Receipt Date: 20190731
  Transmission Date: 20191004
  Serious: Yes (Hospitalization)
  Sender: FDA-Public Use
  Company Number: JP-JNJFOC-20190637669

PATIENT
  Age: 3 Year
  Sex: Female

DRUGS (8)
  1. VENOGLOBULIN IH [Suspect]
     Active Substance: HUMAN IMMUNOGLOBULIN G
     Indication: KAWASAKI^S DISEASE
     Dosage: 32.5 GRAM, QD
     Route: 041
     Dates: start: 20190528, end: 20190529
  2. REMICADE [Suspect]
     Active Substance: INFLIXIMAB
     Indication: KAWASAKI^S DISEASE
     Route: 042
     Dates: start: 20190602
  3. PREDONINE [Suspect]
     Active Substance: PREDNISOLONE
     Indication: KAWASAKI^S DISEASE
     Dosage: 15 MILLIGRAM, QD
     Route: 048
     Dates: start: 20190617, end: 20190624
  4. ACETYLSALICYLIC ACID [Concomitant]
     Active Substance: ASPIRIN
     Indication: KAWASAKI^S DISEASE
     Dosage: 0.78 GRAM, QD
     Route: 048
     Dates: start: 20190528, end: 20190530
  5. CEFTRIAXONE DISODIUM SALT HEMIHEPTAHYDRATE [Concomitant]
     Active Substance: CEFTRIAXONE SODIUM
     Indication: OTITIS MEDIA
     Dosage: 750 MILLIGRAM, QD
     Route: 041
     Dates: start: 20190607, end: 20190609
  6. PREDONINE [Suspect]
     Active Substance: PREDNISOLONE
     Indication: KAWASAKI^S DISEASE
     Dosage: 30 MILLIGRAM, QD
     Route: 041
     Dates: start: 20190607, end: 20190616
  7. PREDONINE [Suspect]
     Active Substance: PREDNISOLONE
     Dosage: 7.5 MILLIGRAM, QD
     Route: 048
     Dates: start: 20190625, end: 20190629
  8. ACETYLSALICYLIC ACID [Concomitant]
     Active Substance: ASPIRIN
     Dosage: 0.08 GRAM, QD
     Route: 048
     Dates: start: 20190531

REACTIONS (1)
  - Leukocytosis [Recovering/Resolving]

NARRATIVE: CASE EVENT DATE: 20190614
